FAERS Safety Report 7444443-0 (Version None)
Quarter: 2011Q2

REPORT INFORMATION
  Report Type: 
  Country: None (occurrence: None)
  Receive Date: 20110419
  Receipt Date: 20110408
  Transmission Date: 20111010
  Serious: Yes (Death, Other)
  Sender: FDA-Public Use
  Company Number: 115487

PATIENT
  Age: 35 Year
  Sex: Male

DRUGS (1)
  1. BUPRENORPHINE HCL [Suspect]

REACTIONS (9)
  - CYANOSIS [None]
  - RESPIRATORY DEPRESSION [None]
  - MEDICATION ERROR [None]
  - OVERDOSE [None]
  - ASPHYXIA [None]
  - SUBSTANCE USE [None]
  - INCORRECT ROUTE OF DRUG ADMINISTRATION [None]
  - ALCOHOL USE [None]
  - MULTI-ORGAN DISORDER [None]
